FAERS Safety Report 9501411 (Version 1)
Quarter: 2013Q3

REPORT INFORMATION
  Report Type: Spontaneous
  Country: IT (occurrence: IT)
  Receive Date: 20130905
  Receipt Date: 20130905
  Transmission Date: 20140515
  Serious: Yes (Congenital Anomaly)
  Sender: FDA-Public Use
  Company Number: IT-TEVA-429241ISR

PATIENT
  Sex: Female

DRUGS (2)
  1. DIAZEPAM [Suspect]
     Route: 065
  2. METHADONE [Suspect]
     Dosage: 30 MILLIGRAM DAILY;
     Route: 065

REACTIONS (2)
  - Congenital nystagmus [Not Recovered/Not Resolved]
  - Foetal exposure during pregnancy [Unknown]
